FAERS Safety Report 12115623 (Version 3)
Quarter: 2016Q1

REPORT INFORMATION
  Report Type: Report from Study
  Country: TW (occurrence: TW)
  Receive Date: 20160225
  Receipt Date: 20160304
  Transmission Date: 20160526
  Serious: Yes (Hospitalization)
  Sender: FDA-Public Use
  Company Number: TW-GLAXOSMITHKLINE-TW2016024180

PATIENT
  Age: 42 Year
  Sex: Male
  Weight: 78 kg

DRUGS (1)
  1. BELIMUMAB [Suspect]
     Active Substance: BELIMUMAB
     Indication: SYSTEMIC LUPUS ERYTHEMATOSUS
     Dosage: 10 MG/KG, CYC
     Route: 042
     Dates: start: 20150213, end: 20160115

REACTIONS (1)
  - Thyroid adenoma [Recovered/Resolved]

NARRATIVE: CASE EVENT DATE: 20160215
